FAERS Safety Report 8795777 (Version 1)
Quarter: 2012Q4

REPORT INFORMATION
  Report Type: 
  Country: AU (occurrence: AU)
  Receive Date: 20120920
  Receipt Date: 20120920
  Transmission Date: 20130627
  Serious: Yes (Other)
  Sender: FDA-Public Use
  Company Number: AU-PFIZER INC-2012228549

PATIENT

DRUGS (1)
  1. VORICONAZOLE [Suspect]

REACTIONS (1)
  - Interstitial lung disease [Unknown]
